FAERS Safety Report 6642565-5 (Version None)
Quarter: 2010Q1

REPORT INFORMATION
  Report Type: 
  Country: None (occurrence: None)
  Receive Date: 20100319
  Receipt Date: 20100312
  Transmission Date: 20100710
  Serious: Yes (Hospitalization)
  Sender: FDA-Public Use
  Company Number: CA-ASTRAZENECA-2010SE10948

PATIENT
  Sex: Female

DRUGS (1)
  1. SEROQUEL XR [Suspect]
     Dosage: 70 TABLETS
     Route: 048

REACTIONS (4)
  - CARDIAC ARREST [None]
  - HYPOTENSION [None]
  - MECHANICAL VENTILATION [None]
  - OVERDOSE [None]
